FAERS Safety Report 7289442-7 (Version None)
Quarter: 2011Q1

REPORT INFORMATION
  Report Type: 
  Country: None (occurrence: None)
  Receive Date: 20110211
  Receipt Date: 20101209
  Transmission Date: 20110831
  Serious: Yes (Hospitalization)
  Sender: FDA-Public Use
  Company Number: CN-BAYER-200827932GPV

PATIENT
  Sex: Male
  Weight: 93 kg

DRUGS (1)
  1. BLINDED MOXIFLOXACIN ORAL [Suspect]
     Indication: BRONCHITIS
     Route: 048
     Dates: start: 20081006, end: 20081008

REACTIONS (1)
  - CHRONIC OBSTRUCTIVE PULMONARY DISEASE [None]
